FAERS Safety Report 9143654 (Version 2)
Quarter: 2013Q2

REPORT INFORMATION
  Report Type: Spontaneous
  Country: IT (occurrence: IT)
  Receive Date: 20130306
  Receipt Date: 20130422
  Transmission Date: 20140414
  Serious: Yes (Hospitalization)
  Sender: FDA-Public Use
  Company Number: IT-ROCHE-1198390

PATIENT
  Age: 72 Year
  Sex: Male

DRUGS (8)
  1. MABTHERA [Suspect]
     Indication: CHRONIC LYMPHOCYTIC LEUKAEMIA
     Route: 042
     Dates: start: 20130121, end: 20130218
  2. SIMVASTATINA [Concomitant]
     Route: 048
     Dates: start: 20120101, end: 20130226
  3. LANTUS [Concomitant]
     Indication: DIABETES MELLITUS
     Dosage: 19 UNITS AT 10 PM
     Route: 058
     Dates: start: 20120101, end: 20130226
  4. FLEBOCORTID [Concomitant]
     Route: 042
     Dates: start: 20130218, end: 20130218
  5. QUINAZIDE [Concomitant]
     Route: 048
     Dates: start: 20130101, end: 20130226
  6. TRIMETON [Concomitant]
     Route: 042
     Dates: start: 20130218, end: 20130218
  7. HUMALOG [Concomitant]
     Indication: DIABETES MELLITUS
     Dosage: 6 UNIT IN MORNING, 8 UNIT AT 12 AM AND 8 UNITS AT NIGHT
     Route: 058
     Dates: start: 20130101, end: 20130226
  8. CARDIOASPIRIN [Concomitant]
     Route: 048
     Dates: start: 20130101, end: 20130226

REACTIONS (2)
  - Hyperthermia [Recovered/Resolved]
  - Purpura [Recovered/Resolved]
